FAERS Safety Report 5324227-X (Version None)
Quarter: 2007Q2

REPORT INFORMATION
  Report Type: 
  Country: None (occurrence: None)
  Receive Date: 20070514
  Receipt Date: 20070508
  Transmission Date: 20071010
  Serious: Yes (Other)
  Sender: FDA-Public Use
  Company Number: US-GENENTECH-239918

PATIENT
  Age: 39 Year
  Sex: Male

DRUGS (6)
  1. RAPTIVA [Suspect]
     Indication: PSORIASIS
     Dosage: 1 MG, UNK
     Route: 058
     Dates: start: 20070402
  2. TENORMIN [Concomitant]
     Indication: DRUG USE FOR UNKNOWN INDICATION
  3. PREVACID [Concomitant]
     Indication: DRUG USE FOR UNKNOWN INDICATION
  4. TACLONEX OINTMENT [Concomitant]
     Indication: DRUG USE FOR UNKNOWN INDICATION
  5. HYDROCORTISONE 0.5% [Concomitant]
     Indication: DRUG USE FOR UNKNOWN INDICATION
  6. UNIRETIC [Concomitant]
     Indication: DRUG USE FOR UNKNOWN INDICATION

REACTIONS (1)
  - LOSS OF CONSCIOUSNESS [None]
